FAERS Safety Report 9541990 (Version 1)
Quarter: 2013Q3

REPORT INFORMATION
  Report Type: Spontaneous
  Country: FR (occurrence: FR)
  Receive Date: 20130923
  Receipt Date: 20130923
  Transmission Date: 20140515
  Serious: Yes (Hospitalization, Other)
  Sender: FDA-Public Use
  Company Number: FR-009507513-1309FRA005843

PATIENT
  Age: 55 Year
  Sex: Male
  Weight: 86 kg

DRUGS (6)
  1. VICTRELIS [Suspect]
     Indication: HEPATITIS C
     Dosage: 800 MG, TID
     Route: 048
     Dates: start: 20130312
  2. COPEGUS [Suspect]
     Indication: HEPATITIS C
     Dosage: 500 MG, BID
     Dates: start: 20130208
  3. PEGASYS [Suspect]
     Indication: HEPATITIS C
     Dosage: 180 MICROGRAM, QW
     Dates: start: 20130208
  4. NEORECORMON [Concomitant]
     Indication: ANAEMIA
     Dosage: 30000 IU, QM3
     Dates: start: 20130423
  5. NEUPOGEN [Concomitant]
     Indication: NEUTROPENIA
     Dosage: 30 IU, QW
     Dates: start: 20130215
  6. REVOLADE [Concomitant]
     Indication: THROMBOCYTOPENIA
     Dosage: 75 MG, QD
     Dates: start: 20130408

REACTIONS (3)
  - Hepatocellular carcinoma [Unknown]
  - Ascites [Recovered/Resolved]
  - Lung disorder [Unknown]
